FAERS Safety Report 22121990 (Version 4)
Quarter: 2025Q2

REPORT INFORMATION
  Report Type: Report from Study
  Country: US (occurrence: US)
  Receive Date: 20230321
  Receipt Date: 20250507
  Transmission Date: 20250716
  Serious: Yes (Other)
  Sender: TAKEDA
  Company Number: US-TAKEDA-US201914467

PATIENT
  Sex: Female

DRUGS (2)
  1. HUMAN IMMUNOGLOBULIN G [Suspect]
     Active Substance: HUMAN IMMUNOGLOBULIN G
     Indication: Selective IgA immunodeficiency
     Dosage: 10 GRAM, 1/WEEK
  2. HUMAN IMMUNOGLOBULIN G [Suspect]
     Active Substance: HUMAN IMMUNOGLOBULIN G
     Indication: Primary immunodeficiency syndrome

REACTIONS (14)
  - Diabetes mellitus [Unknown]
  - Infusion site haemorrhage [Unknown]
  - Fatigue [Unknown]
  - Multiple allergies [Unknown]
  - Nasopharyngitis [Unknown]
  - Illness [Unknown]
  - COVID-19 [Unknown]
  - Weight decreased [Unknown]
  - Insurance issue [Unknown]
  - Blood immunoglobulin A increased [Unknown]
  - Protein total abnormal [Unknown]
  - Inappropriate schedule of product administration [Unknown]
  - Hypergammaglobulinaemia benign monoclonal [Unknown]
  - Blood cholesterol increased [Unknown]
